FAERS Safety Report 24109765 (Version 2)
Quarter: 2024Q4

REPORT INFORMATION
  Report Type: Spontaneous
  Country: JP (occurrence: JP)
  Receive Date: 20240718
  Receipt Date: 20241202
  Transmission Date: 20250115
  Serious: Yes (Death)
  Sender: ELI LILLY AND COMPANY
  Company Number: JP-NShinyaku-EVA202302646ZZLILLY

PATIENT
  Age: 65 Year
  Sex: Male

DRUGS (2)
  1. TADALAFIL [Suspect]
     Active Substance: TADALAFIL
     Indication: Pulmonary arterial hypertension
     Dosage: UNK MG, UNKNOWN
     Route: 048
     Dates: start: 20230412
  2. OPSUMIT [Concomitant]
     Active Substance: MACITENTAN
     Indication: Pulmonary arterial hypertension
     Dosage: 10 MG, DAILY
     Route: 048
     Dates: start: 20230412, end: 20230510

REACTIONS (1)
  - Dyspnoea [Fatal]
